FAERS Safety Report 9924450 (Version 1)
Quarter: 2014Q1

REPORT INFORMATION
  Report Type: Spontaneous
  Country: US (occurrence: None)
  Receive Date: 20140224
  Receipt Date: 20140224
  Transmission Date: 20141002
  Serious: Yes (Disabling)
  Sender: FDA-Public Use
  Company Number: None

PATIENT
  Age: 62 Year
  Sex: Male
  Weight: 111.13 kg

DRUGS (1)
  1. HUMIRA 40 MG ABBVIE [Suspect]
     Indication: PSORIASIS
     Dosage: 2 TIMES A WEEK
     Route: 030
     Dates: start: 20081125, end: 20120731

REACTIONS (6)
  - Balance disorder [None]
  - Discomfort [None]
  - Gait disturbance [None]
  - Dysgraphia [None]
  - Fall [None]
  - Movement disorder [None]
